FAERS Safety Report 17709283 (Version 2)
Quarter: 2020Q2

REPORT INFORMATION
  Report Type: Spontaneous
  Country: FR (occurrence: FR)
  Receive Date: 20200426
  Receipt Date: 20200501
  Transmission Date: 20200714
  Serious: Yes (Other)
  Sender: FDA-Public Use
  Company Number: FR-BAXTER-2020BAX008626

PATIENT
  Age: 20 Year
  Sex: Male

DRUGS (3)
  1. PAZOPANIB [Concomitant]
     Active Substance: PAZOPANIB
     Indication: RHABDOMYOSARCOMA
     Dosage: 1 CYCLE
     Route: 065
  2. IFOSFAMIDE. [Concomitant]
     Active Substance: IFOSFAMIDE
     Indication: RHABDOMYOSARCOMA
     Dosage: 1 CYCLE
     Route: 065
  3. DOXIL [Suspect]
     Active Substance: DOXORUBICIN HYDROCHLORIDE
     Indication: RHABDOMYOSARCOMA
     Route: 065

REACTIONS (2)
  - Malignant neoplasm progression [Unknown]
  - Rhabdomyosarcoma [Unknown]
